FAERS Safety Report 9196372 (Version 1)
Quarter: 2013Q1

REPORT INFORMATION
  Report Type: Spontaneous
  Country: US (occurrence: US)
  Receive Date: 20130328
  Receipt Date: 20130328
  Transmission Date: 20140127
  Serious: Yes (Other)
  Sender: FDA-Public Use
  Company Number: US-PFIZER INC-2013098093

PATIENT
  Age: 43 Year
  Sex: Female
  Weight: 68 kg

DRUGS (4)
  1. NEURONTIN [Suspect]
     Indication: MIGRAINE
     Dosage: UNK
  2. NEURONTIN [Suspect]
     Dosage: 600 MG, 3X/DAY
     Dates: start: 201301
  3. ZOLOFT [Suspect]
     Indication: GENERALISED ANXIETY DISORDER
     Dosage: UNK
  4. KLONOPIN [Concomitant]
     Indication: GENERALISED ANXIETY DISORDER
     Dosage: 2 MG, 1X/DAY

REACTIONS (7)
  - Urinary tract infection [Unknown]
  - Decreased appetite [Unknown]
  - Weight decreased [Unknown]
  - Off label use [Unknown]
  - Weight increased [Unknown]
  - Hunger [Unknown]
  - Breast swelling [Unknown]
